FAERS Safety Report 10988995 (Version 3)
Quarter: 2015Q2

REPORT INFORMATION
  Report Type: Spontaneous
  Country: US (occurrence: US)
  Receive Date: 20150405
  Receipt Date: 20150522
  Transmission Date: 20150821
  Serious: No
  Sender: FDA-Public Use
  Company Number: US-009507513-1503USA008669

PATIENT
  Age: 50 Year
  Sex: Female
  Weight: 61.22 kg

DRUGS (2)
  1. BELSOMRA [Suspect]
     Active Substance: SUVOREXANT
     Indication: INSOMNIA
     Dosage: 10 MG, THREE DIFFERENT TIMES OVER A TWO WEEK PERIOD, HS
     Route: 048
     Dates: start: 2015, end: 20150316
  2. BELSOMRA [Suspect]
     Active Substance: SUVOREXANT
     Dosage: 10 MG, HS
     Route: 048
     Dates: start: 2015

REACTIONS (4)
  - Sleep terror [Recovered/Resolved]
  - Nightmare [Recovered/Resolved]
  - Nightmare [Recovered/Resolved]
  - Sleep terror [Recovered/Resolved]

NARRATIVE: CASE EVENT DATE: 2015
